FAERS Safety Report 18238726 (Version 1)
Quarter: 2020Q3

REPORT INFORMATION
  Report Type: Spontaneous
  Country: US (occurrence: US)
  Receive Date: 20200907
  Receipt Date: 20200907
  Transmission Date: 20201103
  Serious: No
  Sender: FDA-Public Use
  Company Number: US-AMGEN-USASP2020142519

PATIENT
  Age: 79 Year
  Sex: Female
  Weight: 76.64 kg

DRUGS (2)
  1. PROCRIT [Suspect]
     Active Substance: ERYTHROPOIETIN
     Indication: MYELODYSPLASTIC SYNDROME
     Dosage: 60000 INTERNATIONAL UNIT, Q2WK
     Route: 058
     Dates: start: 20200828
  2. PROCRIT [Suspect]
     Active Substance: ERYTHROPOIETIN
     Dosage: 60000 INTERNATIONAL UNIT, Q2WK
     Route: 058
     Dates: start: 20200828

REACTIONS (2)
  - Off label use [Unknown]
  - Accidental exposure to product [Unknown]

NARRATIVE: CASE EVENT DATE: 20200828
